FAERS Safety Report 24699237 (Version 3)
Quarter: 2024Q4

REPORT INFORMATION
  Report Type: Report from Study
  Country: GR (occurrence: GR)
  Receive Date: 20241205
  Receipt Date: 20241225
  Transmission Date: 20250114
  Serious: Yes (Hospitalization, Other)
  Sender: ABBVIE
  Company Number: GR-ABBVIE-5899523

PATIENT
  Age: 56 Year
  Sex: Male
  Weight: 74 kg

DRUGS (4)
  1. CARBIDOPA\LEVODOPA [Suspect]
     Active Substance: CARBIDOPA\LEVODOPA
     Indication: Parkinson^s disease
     Dosage: MORNING DOSE: 9.8ML; CONTINUOUS RATE: 2.1ML/H; EXTRA DOSE: 1.5ML
     Route: 050
     Dates: start: 20230215
  2. CARBIDOPA\LEVODOPA [Suspect]
     Active Substance: CARBIDOPA\LEVODOPA
     Dosage: MORNING DOSE: 9.8ML; CONTINUOUS RATE: 2.3ML/H; EXTRA DOSE: 1.5ML
     Route: 050
  3. CARBIDOPA\LEVODOPA [Suspect]
     Active Substance: CARBIDOPA\LEVODOPA
     Dosage: MORNING DOSE: 6.1ML; CONTINUOUS RATE: 2.3ML/H; EXTRA DOSE: 1.5ML
     Route: 050
  4. CARBIDOPA\LEVODOPA [Suspect]
     Active Substance: CARBIDOPA\LEVODOPA
     Dosage: MORNING DOSE: 6.1ML; CONTINUOUS RATE: 2.3ML/H; EXTRA DOSE: 1.5ML
     Route: 050

REACTIONS (17)
  - Gait disturbance [Unknown]
  - Stoma site erythema [Unknown]
  - Motor dysfunction [Not Recovered/Not Resolved]
  - Bradykinesia [Unknown]
  - Stoma site infection [Unknown]
  - Fall [Recovered/Resolved]
  - Tremor [Unknown]
  - Musculoskeletal stiffness [Unknown]
  - Lethargy [Recovered/Resolved]
  - Device dislocation [Recovered/Resolved]
  - Hyperkinesia [Unknown]
  - Device dislocation [Recovered/Resolved]
  - Device kink [Unknown]
  - Gastritis [Unknown]
  - Respiratory tract infection [Recovered/Resolved]
  - Device issue [Unknown]
  - Loss of consciousness [Recovered/Resolved]

NARRATIVE: CASE EVENT DATE: 20240101
